FAERS Safety Report 5520583-8 (Version None)
Quarter: 2007Q4

REPORT INFORMATION
  Report Type: 
  Country: None (occurrence: None)
  Receive Date: 20071119
  Receipt Date: 20071112
  Transmission Date: 20080405
  Serious: Yes (Other)
  Sender: FDA-Public Use
  Company Number: US-SOLVAY-00207033909

PATIENT
  Age: 51 Year
  Sex: Male
  Weight: 118 kg

DRUGS (5)
  1. ALBUTEROL [Concomitant]
     Indication: ASTHMA
     Dosage: DAILY DOSE:  UNKNOWN; AS NEEDED
     Route: 048
  2. ANDROGEL [Suspect]
     Indication: BLOOD TESTOSTERONE DECREASED
     Dosage: DAILY DOSE: 5 GRAM(S) VIA PUMP
     Route: 062
     Dates: start: 20070301, end: 20070601
  3. ANDROGEL [Suspect]
     Dosage: DAILY DOSE: 7.5 GRAM(S) VIA PUMP
     Route: 062
     Dates: start: 20070821, end: 20071101
  4. ANDROGEL [Suspect]
     Dosage: DAILY DOSE: 5 GRAM(S)
     Route: 062
     Dates: start: 20071101
  5. XANAX [Concomitant]
     Indication: ILL-DEFINED DISORDER
     Dosage: DAILY DOSE: 2 DOSAGE FORM
     Route: 048

REACTIONS (8)
  - BLOOD TESTOSTERONE INCREASED [None]
  - CARDIOMYOPATHY [None]
  - CONDITION AGGRAVATED [None]
  - DRUG EFFECT DECREASED [None]
  - INSOMNIA [None]
  - PERICARDIAL EFFUSION [None]
  - SLEEP APNOEA SYNDROME [None]
  - WEIGHT INCREASED [None]
